FAERS Safety Report 5731152-9 (Version None)
Quarter: 2008Q2

REPORT INFORMATION
  Report Type: 
  Country: None (occurrence: None)
  Receive Date: 20080505
  Receipt Date: 20080430
  Transmission Date: 20081010
  Serious: Yes (Life-Threatening, Hospitalization, Other)
  Sender: FDA-Public Use
  Company Number: 2006-04-0387

PATIENT
  Age: 57 Year
  Sex: Male
  Weight: 99 kg

DRUGS (3)
  1. VIRAFERON [Suspect]
     Indication: HEPATITIS C
     Dosage: 3 MIU; BIW; SC
     Route: 058
     Dates: start: 19981101, end: 19991101
  2. REBETOL [Suspect]
     Indication: HEPATITIS C
     Dosage: 600 MG; BID; PO
     Route: 048
     Dates: start: 19981101, end: 19991101
  3. LEVOTHYROXINE SODIUM [Concomitant]

REACTIONS (1)
  - COLON CANCER [None]
